FAERS Safety Report 14585385 (Version 1)
Quarter: 2018Q1

REPORT INFORMATION
  Report Type: Other
  Country: DE (occurrence: DE)
  Receive Date: 20180301
  Receipt Date: 20180301
  Transmission Date: 20180509
  Serious: Yes (Congenital Anomaly, Other)
  Sender: FDA-Public Use
  Company Number: DE-LUPIN PHARMACEUTICALS INC.-2018-01490

PATIENT
  Sex: Male
  Weight: 4.2 kg

DRUGS (4)
  1. QUETIAPINE. [Suspect]
     Active Substance: QUETIAPINE
     Indication: DEPRESSION
     Dosage: 1 TRIMESTER, 0. - 40.2. GESTATIONAL WEEK
     Route: 064
     Dates: start: 20160612, end: 20170321
  2. L-THYROXIN                         /00068001/ [Concomitant]
     Active Substance: LEVOTHYROXINE
     Indication: HYPOTHYROIDISM
     Dosage: 2 TRIMESTER, 13.4. - 40.2. GESTATIONAL WEEK
     Route: 064
     Dates: start: 20160915, end: 20170321
  3. QUETIAPINE. [Suspect]
     Active Substance: QUETIAPINE
     Dosage: 150 MG, QD, AT WEEK 2
     Route: 064
  4. ELEVIT                             /01730301/ [Concomitant]
     Active Substance: FOLIC ACID\IRON\MINERALS\VITAMINS
     Indication: PROPHYLAXIS OF NEURAL TUBE DEFECT
     Dosage: FIRST TRIMESTER, 0. - 40.2. GESTATIONAL WEEK
     Route: 064
     Dates: start: 20160612, end: 20170321

REACTIONS (2)
  - Foetal exposure during pregnancy [Unknown]
  - Cryptorchism [Recovered/Resolved with Sequelae]
